FAERS Safety Report 18111005 (Version 1)
Quarter: 2020Q3

REPORT INFORMATION
  Report Type: Spontaneous
  Country: AR (occurrence: AR)
  Receive Date: 20200805
  Receipt Date: 20200805
  Transmission Date: 20201103
  Serious: Yes (Other)
  Sender: FDA-Public Use
  Company Number: AR-AMGEN-ARGSP2020118750

PATIENT
  Age: 69 Year
  Sex: Female

DRUGS (1)
  1. ENBREL [Suspect]
     Active Substance: ETANERCEPT
     Indication: RHEUMATOID ARTHRITIS
     Dosage: 50 MG, WEEKLY
     Route: 065
     Dates: start: 20160331

REACTIONS (7)
  - Spinal disorder [Unknown]
  - Malaise [Unknown]
  - Psoriatic arthropathy [Unknown]
  - Intentional dose omission [Unknown]
  - Bone pain [Unknown]
  - Pain [Unknown]
  - Aortic valve disease [Recovered/Resolved]
